FAERS Safety Report 6693698-9 (Version None)
Quarter: 2010Q2

REPORT INFORMATION
  Report Type: 
  Country: None (occurrence: None)
  Receive Date: 20100421
  Receipt Date: 20100406
  Transmission Date: 20101027
  Serious: Yes (Hospitalization, Other)
  Sender: FDA-Public Use
  Company Number: 2010SP016178

PATIENT
  Age: 16 Year
  Sex: Female
  Weight: 56.6996 kg

DRUGS (10)
  1. CORICIDIN [Suspect]
     Indication: DRUG ABUSE
     Dosage: PO ; 6 DF;PO ; 32 DF;PO ; 44 DF;PO ; PO
     Route: 048
     Dates: start: 20090201
  2. CORICIDIN [Suspect]
     Indication: DRUG ABUSE
     Dosage: PO ; 6 DF;PO ; 32 DF;PO ; 44 DF;PO ; PO
     Route: 048
     Dates: start: 20090408
  3. CORICIDIN [Suspect]
     Indication: DRUG ABUSE
     Dosage: PO ; 6 DF;PO ; 32 DF;PO ; 44 DF;PO ; PO
     Route: 048
     Dates: start: 20090801
  4. CORICIDIN [Suspect]
     Indication: DRUG ABUSE
     Dosage: PO ; 6 DF;PO ; 32 DF;PO ; 44 DF;PO ; PO
     Route: 048
     Dates: start: 20091101
  5. CORICIDIN [Suspect]
     Indication: DRUG ABUSE
     Dosage: PO ; 6 DF;PO ; 32 DF;PO ; 44 DF;PO ; PO
     Route: 048
     Dates: start: 20100201
  6. VYVANSE [Suspect]
     Indication: DRUG USE FOR UNKNOWN INDICATION
  7. REMERON [Suspect]
     Indication: DEPRESSION
  8. ZOLOFT [Concomitant]
  9. TRILEPTAL [Concomitant]
  10. VYVANSE [Concomitant]

REACTIONS (5)
  - CONVULSION [None]
  - DRUG ABUSE [None]
  - DRUG INTERACTION [None]
  - HALLUCINATION [None]
  - HEART RATE INCREASED [None]
